FAERS Safety Report 13040748 (Version 1)
Quarter: 2016Q4

REPORT INFORMATION
  Report Type: Spontaneous
  Country: BR (occurrence: BR)
  Receive Date: 20161219
  Receipt Date: 20161219
  Transmission Date: 20170207
  Serious: Yes (Other)
  Sender: FDA-Public Use
  Company Number: BR-PFIZER INC-2016579458

PATIENT
  Age: 43 Year
  Sex: Female
  Weight: 76 kg

DRUGS (3)
  1. XALATAN [Suspect]
     Active Substance: LATANOPROST
     Dosage: 1X/DAY IN THE RIGHT SIGHT
     Route: 031
     Dates: start: 2007
  2. OPTIVE [Concomitant]
     Active Substance: CARBOXYMETHYLCELLULOSE SODIUM\GLYCERIN
     Dosage: 2 GTT (1 DROP IN BOTH SIGHT), 2X/DAY
     Route: 031
  3. TIMOLOL. [Concomitant]
     Active Substance: TIMOLOL
     Dosage: 2X/DAY IN THE RIGHT SIGHT
     Route: 031

REACTIONS (2)
  - Cataract [Unknown]
  - Glaucoma [Unknown]
